FAERS Safety Report 5743028-1 (Version None)
Quarter: 2008Q2

REPORT INFORMATION
  Report Type: 
  Country: None (occurrence: None)
  Receive Date: 20080515
  Receipt Date: 20080424
  Transmission Date: 20081010
  Serious: Yes (Other)
  Sender: FDA-Public Use
  Company Number: WWISSUE-172

PATIENT
  Age: 76 Year
  Sex: Female

DRUGS (12)
  1. BELLADONNA ALKALOIDS W/ PHENOBARBITAL [Suspect]
     Indication: HERNIA
     Dosage: 1 TABLET 4 X DAY
     Dates: start: 20080304, end: 20080424
  2. ZANTAC [Concomitant]
  3. THYROLAR [Concomitant]
  4. TYLENOL W/ CODEINE [Concomitant]
  5. TESSOL PEARLS [Concomitant]
  6. VROBENECID [Concomitant]
  7. PERI-COLACE [Concomitant]
  8. MICRO-K [Concomitant]
  9. LASIC WATER PILLS [Concomitant]
  10. DONNATAL [Concomitant]
  11. BUTAL SULFATE [Concomitant]
  12. VITAMIN TAB [Concomitant]

REACTIONS (1)
  - DRUG INEFFECTIVE [None]
